FAERS Safety Report 6648398-8 (Version None)
Quarter: 2010Q1

REPORT INFORMATION
  Report Type: 
  Country: None (occurrence: None)
  Receive Date: 20100324
  Receipt Date: 20100318
  Transmission Date: 20100710
  Serious: Yes (Hospitalization)
  Sender: FDA-Public Use
  Company Number: BR-ABBOTT-08P-020-0482516-00

PATIENT
  Sex: Male
  Weight: 68 kg

DRUGS (10)
  1. HUMIRA [Suspect]
     Indication: CROHN'S DISEASE
     Dosage: INDUCTION DOSE: 160MG/ 80MG/ 15 DAYS
     Route: 058
     Dates: start: 20071028, end: 20080908
  2. PREDNISONE [Concomitant]
     Indication: CROHN'S DISEASE
     Route: 048
  3. MESALAZINE [Concomitant]
     Indication: CROHN'S DISEASE
     Route: 048
  4. METHOTREXATE [Concomitant]
     Indication: CROHN'S DISEASE
     Route: 030
  5. CYCLOBENZAPRINE [Concomitant]
     Indication: MUSCLE RELAXANT THERAPY
     Route: 048
  6. CIPROFLOXACIN [Concomitant]
     Indication: ANTIBIOTIC PROPHYLAXIS
     Route: 048
  7. ALPRAZOLAM [Concomitant]
     Indication: SLEEP DISORDER THERAPY
     Route: 048
  8. DIAZEPAM [Concomitant]
     Indication: SLEEP DISORDER THERAPY
     Route: 048
  9. OMEPRAZOLE [Concomitant]
     Indication: GASTRIC DISORDER
     Route: 048
  10. NUTRITIONAL AGENTS AND VITAMINS (MODULEN) [Concomitant]
     Indication: NUTRITIONAL SUPPORT
     Route: 048

REACTIONS (5)
  - BLOOD GLUCOSE ABNORMAL [None]
  - BLOOD PRESSURE ABNORMAL [None]
  - CYTOMEGALOVIRUS INFECTION [None]
  - DRUG INEFFECTIVE [None]
  - PROCTITIS [None]
